FAERS Safety Report 5284298-6 (Version None)
Quarter: 2007Q1

REPORT INFORMATION
  Report Type: 
  Country: None (occurrence: None)
  Receive Date: 20061227
  Receipt Date: 20060922
  Transmission Date: 20070707
  Serious: Yes (Disabling)
  Sender: FDA-Public Use
  Company Number: A03200605867

PATIENT
  Age: 64 Year
  Sex: Male

DRUGS (4)
  1. AMBIEN [Suspect]
     Indication: INSOMNIA
     Dosage: TOOK 2 DOSES WITHIN 20 MINS OF EACH OTHER - ORAL
     Route: 048
     Dates: start: 20060920
  2. CABERGOLINE [Concomitant]
  3. LOVASTATIN [Concomitant]
  4. BISOPROLOL FUMARATE AND HYDROCHLOROTHIAZIDE [Concomitant]

REACTIONS (4)
  - ACCIDENTAL OVERDOSE [None]
  - BALANCE DISORDER [None]
  - LETHARGY [None]
  - NOCTURIA [None]
